FAERS Safety Report 4544903-6 (Version None)
Quarter: 2005Q1

REPORT INFORMATION
  Report Type: 
  Country: None (occurrence: None)
  Receive Date: 20050104
  Receipt Date: 20030807
  Transmission Date: 20050727
  Serious: Yes (Life-Threatening, Hospitalization, Disabling)
  Sender: FDA-Public Use
  Company Number: 5674

PATIENT
  Age: 72 Year
  Sex: Male

DRUGS (2)
  1. METHOTREXATE [Suspect]
     Indication: RHEUMATOID ARTHRITIS
     Dosage: 10 MG WEEKLY PO
     Route: 048
     Dates: start: 20021003, end: 20030101
  2. NAPROXEN [Concomitant]

REACTIONS (6)
  - ATRIAL FIBRILLATION [None]
  - CARDIAC FAILURE [None]
  - FIBRIN D DIMER INCREASED [None]
  - PNEUMONITIS [None]
  - PO2 ABNORMAL [None]
  - VENTRICULAR DYSFUNCTION [None]
